FAERS Safety Report 13284974 (Version 2)
Quarter: 2018Q1

REPORT INFORMATION
  Report Type: Spontaneous
  Country: US (occurrence: US)
  Receive Date: 20170301
  Receipt Date: 20180201
  Transmission Date: 20180508
  Serious: Yes (Other)
  Sender: FDA-Public Use
  Company Number: US-PFIZER INC-2017083840

PATIENT
  Age: 65 Year
  Sex: Female
  Weight: 68.27 kg

DRUGS (4)
  1. FASLODEX [Concomitant]
     Active Substance: FULVESTRANT
     Dosage: UNK, MONTHLY
     Dates: start: 201610
  2. IBRANCE [Suspect]
     Active Substance: PALBOCICLIB
     Indication: BREAST CANCER METASTATIC
     Dosage: 75 MG, CYCLIC (TAKES THE MEDICINE MONDAY- FRIDAY FOR 3 WEEKS AND IS OFF EVERY WEEKEND AND HAS THE 4)
     Route: 048
     Dates: start: 20161001, end: 20180123
  3. XARELTO [Concomitant]
     Active Substance: RIVAROXABAN
     Indication: PULMONARY EMBOLISM
     Dosage: 20 MG, ONCE A DAY
     Route: 048
  4. SYNTHROID [Concomitant]
     Active Substance: LEVOTHYROXINE SODIUM
     Indication: THYROID DISORDER
     Dosage: 120 UG, ONCE A DAY (EVERY MORNING)
     Route: 048
     Dates: start: 2004

REACTIONS (5)
  - Pyrexia [Unknown]
  - Pulmonary embolism [Unknown]
  - White blood cell count decreased [Unknown]
  - Cough [Not Recovered/Not Resolved]
  - Nasopharyngitis [Unknown]

NARRATIVE: CASE EVENT DATE: 201707
